FAERS Safety Report 8792923 (Version 2)
Quarter: 2012Q4

REPORT INFORMATION
  Report Type: 
  Country: DE (occurrence: DE)
  Receive Date: 20120918
  Receipt Date: 20121030
  Transmission Date: 20130627
  Serious: Yes (Disabling)
  Sender: FDA-Public Use
  Company Number: DE-ACTELION-A-CH2012-71155

PATIENT
  Age: 72 Year
  Sex: Female
  Weight: 58 kg

DRUGS (10)
  1. TRACLEER [Suspect]
     Indication: PULMONARY ARTERIAL HYPERTENSION
     Dosage: 125 mg, bid
     Route: 048
     Dates: start: 20120601
  2. TRACLEER [Suspect]
     Dosage: 62.5 mg, bid
     Route: 048
     Dates: start: 20120518, end: 20120531
  3. AZATHIOPRIN [Suspect]
     Dosage: UNK
     Dates: start: 20120518, end: 20120823
  4. ACTRAPID [Concomitant]
     Dosage: UNK
     Dates: start: 20120518
  5. LANTUS [Concomitant]
     Dosage: UNK
     Dates: start: 20120518
  6. CLOPIDOGREL [Concomitant]
     Dosage: UNK
     Dates: start: 20120518
  7. PHENPROCOUMON [Concomitant]
     Dosage: UNK
     Dates: start: 2001
  8. SIMVASTATIN [Concomitant]
     Dosage: UNK
     Dates: start: 20120518
  9. FENTANYL [Concomitant]
     Dosage: UNK
     Dates: start: 20120711
  10. VERAPAMIL [Concomitant]
     Dosage: UNK
     Dates: start: 2003

REACTIONS (4)
  - Asthenia [Not Recovered/Not Resolved]
  - Decreased appetite [Not Recovered/Not Resolved]
  - Weight decreased [Not Recovered/Not Resolved]
  - Alopecia [Not Recovered/Not Resolved]
